FAERS Safety Report 8022077-7 (Version None)
Quarter: 2011Q4

REPORT INFORMATION
  Report Type: 
  Country: None (occurrence: None)
  Receive Date: 20111123
  Receipt Date: 20111012
  Transmission Date: 20120403
  Serious: No
  Sender: FDA-Public Use
  Company Number: 336042

PATIENT
  Age: 61 Year
  Sex: Female

DRUGS (2)
  1. VICTOZA [Suspect]
     Indication: TYPE 2 DIABETES MELLITUS
     Dosage: 0.6 MG, QD, SUBCUTANEOUS
     Route: 058
     Dates: start: 20110801
  2. METFORMIN HCL [Concomitant]

REACTIONS (4)
  - INJECTION SITE DISCOMFORT [None]
  - LETHARGY [None]
  - MYALGIA [None]
  - SLEEP DISORDER [None]
